FAERS Safety Report 4317171-8 (Version None)
Quarter: 2004Q1

REPORT INFORMATION
  Report Type: 
  Country: None (occurrence: None)
  Receive Date: 20040312
  Receipt Date: 20040301
  Transmission Date: 20041129
  Serious: Yes (Other)
  Sender: FDA-Public Use
  Company Number: 10050206-C596387-0

PATIENT
  Age: 65 Year
  Sex: Male

DRUGS (3)
  1. 2B1323Q-0.9% SOLDIUM CHLORIDE INJECTION, USP [Suspect]
     Dosage: APPROXIMATELY 50ML FLUSH INTRAVENOUS
     Route: 042
     Dates: start: 20040229
  2. ABBOTT BLOOD SET [Concomitant]
  3. RED BLOOD CELLS [Concomitant]

REACTIONS (3)
  - OXYGEN SATURATION DECREASED [None]
  - PYREXIA [None]
  - TRANSFUSION REACTION [None]
